FAERS Safety Report 26049632 (Version 2)
Quarter: 2025Q4

REPORT INFORMATION
  Report Type: Report from Study
  Country: US (occurrence: US)
  Receive Date: 20251115
  Receipt Date: 20251121
  Transmission Date: 20260118
  Serious: No
  Sender: JOHNSON AND JOHNSON
  Company Number: US-JNJFOC-20251157164

PATIENT
  Age: 42 Year
  Sex: Male
  Weight: 91.17 kg

DRUGS (6)
  1. SPRAVATO [Suspect]
     Active Substance: ESKETAMINE
     Indication: Depression
     Dosage: ^^56 MG, 1 TOTAL DOSE^^, RECENT DOSE
     Route: 045
     Dates: start: 20251112, end: 20251112
  2. SPRAVATO [Suspect]
     Active Substance: ESKETAMINE
     Dosage: ^^56 MG, 1 TOTAL DOSE^^
     Route: 045
     Dates: start: 20251107, end: 20251107
  3. ARIPIPRAZOLE [Concomitant]
     Active Substance: ARIPIPRAZOLE
     Indication: Major depression
     Dosage: QD
     Route: 048
     Dates: start: 20230307
  4. ESCITALOPRAM [Concomitant]
     Active Substance: ESCITALOPRAM OXALATE
     Indication: Major depression
     Dosage: QD
     Route: 048
     Dates: start: 20230710
  5. HYDROXYZINE [Concomitant]
     Active Substance: HYDROXYZINE HYDROCHLORIDE
     Indication: Generalised anxiety disorder
     Dosage: QD
     Route: 048
     Dates: start: 20250618
  6. LISDEXAMFETAMINE [Concomitant]
     Active Substance: LISDEXAMFETAMINE
     Indication: Attention deficit hyperactivity disorder
     Dosage: QD
     Route: 048
     Dates: start: 20230911

REACTIONS (1)
  - Hypertension [Recovered/Resolved]

NARRATIVE: CASE EVENT DATE: 20251112
